FAERS Safety Report 17098493 (Version 1)
Quarter: 2019Q4

REPORT INFORMATION
  Report Type: Spontaneous
  Country: AU (occurrence: AU)
  Receive Date: 20191202
  Receipt Date: 20191202
  Transmission Date: 20200122
  Serious: Yes (Hospitalization, Other)
  Sender: FDA-Public Use
  Company Number: AU-VIIV HEALTHCARE LIMITED-AU2019APC213254

PATIENT

DRUGS (1)
  1. TRIUMEQ [Suspect]
     Active Substance: ABACAVIR SULFATE\DOLUTEGRAVIR SODIUM\LAMIVUDINE
     Dosage: UNK

REACTIONS (5)
  - Suicidal ideation [Unknown]
  - Suicide attempt [Unknown]
  - Depression [Unknown]
  - Impaired driving ability [Unknown]
  - Paranoia [Unknown]
